FAERS Safety Report 8732197 (Version 3)
Quarter: 2012Q4

REPORT INFORMATION
  Report Type: Spontaneous
  Country: US (occurrence: None)
  Receive Date: 20120801
  Receipt Date: 20121009
  Transmission Date: 20130627
  Serious: Yes (Other)
  Sender: FDA-Public Use
  Company Number: 2012P1050046

PATIENT
  Age: 60 Year
  Sex: Male
  Weight: 61.24 kg

DRUGS (6)
  1. FENTANYL [Suspect]
     Indication: HEPATITIS C
     Dosage: 1 PATCH;Q2D;TDER
     Route: 062
     Dates: end: 20120720
  2. FENTANYL CITRATE [Suspect]
     Indication: HEPATITIS C
     Dates: start: 2003
  3. FENTANYL CITRATE [Suspect]
     Indication: HEPATITIS C
     Dates: start: 20120721
  4. TYLENOL [Concomitant]
  5. PERCOCET [Concomitant]
  6. ZOLOFT [Concomitant]

REACTIONS (11)
  - Fatigue [None]
  - Nausea [None]
  - Constipation [None]
  - Drug withdrawal syndrome [None]
  - Drug effect decreased [None]
  - Product quality issue [None]
  - Inappropriate schedule of drug administration [None]
  - Pain [None]
  - Aphasia [None]
  - Anxiety [None]
  - Irritability [None]
